FAERS Safety Report 8666724 (Version 2)
Quarter: 2012Q4

REPORT INFORMATION
  Report Type: 
  Country: IT (occurrence: IT)
  Receive Date: 20120716
  Receipt Date: 20120829
  Transmission Date: 20130627
  Serious: Yes (Hospitalization, Other)
  Sender: FDA-Public Use
  Company Number: IT-ELI_LILLY_AND_COMPANY-IT201207002591

PATIENT
  Age: 82 Year
  Sex: Male

DRUGS (7)
  1. CIALIS [Suspect]
     Dosage: 1 DF, UNK
     Route: 048
     Dates: start: 20120703, end: 20120703
  2. TAMSULOSIN HYDROCHLORIDE [Concomitant]
     Indication: BENIGN PROSTATIC HYPERPLASIA
     Dosage: 1 DF, qd
     Route: 048
     Dates: start: 20120702, end: 20120704
  3. DIGOXIN [Concomitant]
     Indication: CARDIAC FAILURE
     Dosage: .25 mg, qd
     Route: 048
     Dates: start: 20120703, end: 20120704
  4. ACETYLSALICYLIC ACID [Concomitant]
     Dosage: 1 DF, UNK
     Route: 048
  5. LIPITOR [Concomitant]
     Dosage: 1 DF, UNK
     Route: 048
  6. HIZAAR [Concomitant]
     Dosage: 1 DF, UNK
     Route: 048
  7. PANTOPRAZOLE [Concomitant]
     Dosage: 20 mg, UNK
     Route: 048
     Dates: start: 20120704, end: 20120704

REACTIONS (7)
  - Syncope [Recovered/Resolved with Sequelae]
  - Hypotension [Recovered/Resolved with Sequelae]
  - Hyperhidrosis [Recovered/Resolved with Sequelae]
  - Pallor [Recovered/Resolved with Sequelae]
  - Anaemia macrocytic [Unknown]
  - Bradycardia [Unknown]
  - Hiatus hernia [Unknown]
